FAERS Safety Report 10856503 (Version 1)
Quarter: 2015Q1

REPORT INFORMATION
  Report Type: Spontaneous
  Country: US (occurrence: US)
  Receive Date: 20150223
  Receipt Date: 20150223
  Transmission Date: 20150721
  Serious: Yes (Hospitalization)
  Sender: FDA-Public Use
  Company Number: US-CELGENEUS-USA-2014111170

PATIENT
  Age: 71 Year
  Sex: Male

DRUGS (1)
  1. REVLIMID [Suspect]
     Active Substance: LENALIDOMIDE
     Indication: PLASMA CELL MYELOMA
     Dosage: 10 MILLIGRAM
     Route: 048
     Dates: start: 20131015, end: 20141028

REACTIONS (4)
  - Kidney infection [Unknown]
  - Myocardial necrosis marker increased [Unknown]
  - Myocardial infarction [Unknown]
  - Body temperature increased [Unknown]

NARRATIVE: CASE EVENT DATE: 20141028
